FAERS Safety Report 6445403-9 (Version None)
Quarter: 2009Q4

REPORT INFORMATION
  Report Type: 
  Country: None (occurrence: None)
  Receive Date: 20091118
  Receipt Date: 20091106
  Transmission Date: 20100525
  Serious: Yes (Other)
  Sender: FDA-Public Use
  Company Number: PHHY2009BR49217

PATIENT
  Sex: Female

DRUGS (1)
  1. DIOVAN HCT [Suspect]
     Indication: HYPERTENSION
     Dosage: UNSPECIFIED DOSE IN THE MORNING
     Route: 048

REACTIONS (5)
  - DRUG INEFFECTIVE [None]
  - FLUID RETENTION [None]
  - HYPERTENSION [None]
  - OEDEMA PERIPHERAL [None]
  - URINE OUTPUT DECREASED [None]
